FAERS Safety Report 5706250-6 (Version None)
Quarter: 2008Q2

REPORT INFORMATION
  Report Type: 
  Country: None (occurrence: None)
  Receive Date: 20080415
  Receipt Date: 20080318
  Transmission Date: 20081010
  Serious: No
  Sender: FDA-Public Use
  Company Number: US-BOEHRINGER INGELHEIM GMBH, GERMANY-2008-BP-04416BP

PATIENT
  Sex: Female

DRUGS (3)
  1. SPIRIVA [Suspect]
     Indication: EMPHYSEMA
     Dates: start: 20071001
  2. PRESCRIPTION MEDICATION [Concomitant]
     Indication: DYSPNOEA
  3. COMBIVENT [Concomitant]

REACTIONS (1)
  - DRUG INEFFECTIVE [None]
